FAERS Safety Report 7819220-9 (Version None)
Quarter: 2011Q4

REPORT INFORMATION
  Report Type: 
  Country: None (occurrence: None)
  Receive Date: 20111018
  Receipt Date: 20101222
  Transmission Date: 20120403
  Serious: No
  Sender: FDA-Public Use
  Company Number: US-ASTRAZENECA-2010SE60595

PATIENT

DRUGS (1)
  1. MERREM [Suspect]
     Route: 042

REACTIONS (1)
  - INCORRECT PRODUCT STORAGE [None]
